FAERS Safety Report 4816941-7 (Version None)
Quarter: 2005Q3

REPORT INFORMATION
  Report Type: 
  Country: None (occurrence: None)
  Receive Date: 20050929
  Receipt Date: 20050621
  Transmission Date: 20060218
  Serious: No
  Sender: FDA-Public Use
  Company Number: 05P-163-0303689-00

PATIENT
  Age: 40 Year
  Sex: Male
  Weight: 154.5 kg

DRUGS (10)
  1. HUMIRA [Suspect]
     Indication: PSORIATIC ARTHROPATHY
     Dosage: 40 MG, 1 IN 1 WK, SUBCUTANEOUS; SEE IMAGE
     Route: 058
     Dates: start: 20050301, end: 20050501
  2. HUMIRA [Suspect]
     Indication: RHEUMATOID ARTHRITIS
     Dosage: 40 MG, 1 IN 1 WK, SUBCUTANEOUS; SEE IMAGE
     Route: 058
     Dates: start: 20050301, end: 20050501
  3. HUMIRA [Suspect]
     Indication: PSORIATIC ARTHROPATHY
     Dosage: 40 MG, 1 IN 1 WK, SUBCUTANEOUS; SEE IMAGE
     Route: 058
     Dates: start: 20050501
  4. HUMIRA [Suspect]
     Indication: RHEUMATOID ARTHRITIS
     Dosage: 40 MG, 1 IN 1 WK, SUBCUTANEOUS; SEE IMAGE
     Route: 058
     Dates: start: 20050501
  5. METHOTREXATE [Concomitant]
  6. FOLIC ACID [Concomitant]
  7. MONTELUKAST SODIUM [Concomitant]
  8. SERETIDE MITE [Concomitant]
  9. NAPROXEN [Concomitant]
  10. VICODIN [Concomitant]

REACTIONS (1)
  - LIVER FUNCTION TEST ABNORMAL [None]
